FAERS Safety Report 9421792 (Version 1)
Quarter: 2013Q3

REPORT INFORMATION
  Report Type: Spontaneous
  Country: US (occurrence: None)
  Receive Date: 20130723
  Receipt Date: 20130723
  Transmission Date: 20140515
  Serious: No
  Sender: FDA-Public Use
  Company Number: None

PATIENT
  Age: 69 Year
  Sex: Female
  Weight: 86.1 kg

DRUGS (2)
  1. CARBOPLATIN [Suspect]
  2. PACLITAXEL (TAXOL) [Suspect]

REACTIONS (1)
  - Neutrophil count decreased [None]
